FAERS Safety Report 10115301 (Version 2)
Quarter: 2015Q1

REPORT INFORMATION
  Report Type: Other
  Country: US (occurrence: US)
  Receive Date: 20140426
  Receipt Date: 20150220
  Transmission Date: 20150720
  Serious: Yes (Hospitalization, Other)
  Sender: FDA-Public Use
  Company Number: US-GSKPPD-2014GSK017143

PATIENT
  Age: 65 Year
  Sex: Male

DRUGS (7)
  1. AVANDIA [Suspect]
     Active Substance: ROSIGLITAZONE MALEATE
     Indication: DIABETES MELLITUS
     Route: 048
  2. FELODIPINE. [Concomitant]
     Active Substance: FELODIPINE
  3. METOPROLOL [Concomitant]
     Active Substance: METOPROLOL
  4. COUMADIN [Concomitant]
     Active Substance: WARFARIN SODIUM
  5. ASPIRIN. [Concomitant]
     Active Substance: ASPIRIN
  6. COZAAR [Concomitant]
     Active Substance: LOSARTAN POTASSIUM
  7. HYDROCHLOROTHIAZIDE. [Concomitant]
     Active Substance: HYDROCHLOROTHIAZIDE

REACTIONS (4)
  - Mitral valve incompetence [Recovered/Resolved]
  - Hypertension [Recovered/Resolved]
  - Myocardial infarction [Unknown]
  - Atrial fibrillation [Recovered/Resolved]

NARRATIVE: CASE EVENT DATE: 20060528
